FAERS Safety Report 18871399 (Version 4)
Quarter: 2023Q2

REPORT INFORMATION
  Report Type: Report from Study
  Country: CA (occurrence: CA)
  Receive Date: 20210210
  Receipt Date: 20230511
  Transmission Date: 20230721
  Serious: Yes (Other)
  Sender: FDA-Public Use
  Company Number: CA-NOVARTISPH-PHHY2018CA002379

PATIENT
  Age: 39 Year
  Sex: Female

DRUGS (15)
  1. COSENTYX [Suspect]
     Active Substance: SECUKINUMAB
     Indication: Ankylosing spondylitis
     Dosage: 150 MG, QW
     Route: 058
     Dates: start: 20180104
  2. COSENTYX [Suspect]
     Active Substance: SECUKINUMAB
     Dosage: 150 MG, QMO
     Route: 058
  3. COSENTYX [Suspect]
     Active Substance: SECUKINUMAB
     Dosage: 150 MG, Q2W
     Route: 058
     Dates: start: 20191205
  4. COSENTYX [Suspect]
     Active Substance: SECUKINUMAB
     Dosage: 150 MG, Q2W
     Route: 058
  5. COSENTYX [Suspect]
     Active Substance: SECUKINUMAB
     Dosage: 150 MG, Q2W
     Route: 058
     Dates: start: 20230401
  6. CIMZIA [Concomitant]
     Active Substance: CERTOLIZUMAB PEGOL
     Indication: Product used for unknown indication
     Dosage: UNK, BIW
     Route: 058
     Dates: start: 201709
  7. INDOMETHACIN [Concomitant]
     Active Substance: INDOMETHACIN
     Indication: Product used for unknown indication
     Dosage: TID
     Route: 048
     Dates: start: 200803
  8. NAPROXEN [Concomitant]
     Active Substance: NAPROXEN
     Indication: Product used for unknown indication
     Dosage: BID
     Route: 065
     Dates: start: 200803
  9. MELOXICAM [Concomitant]
     Active Substance: MELOXICAM
     Indication: Product used for unknown indication
     Dosage: UNK
     Route: 065
     Dates: start: 201707
  10. SOLU-CORTEF [Concomitant]
     Active Substance: HYDROCORTISONE SODIUM SUCCINATE
     Indication: Product used for unknown indication
     Dosage: UNK
     Route: 065
  11. PREDNISONE [Concomitant]
     Active Substance: PREDNISONE
     Indication: Product used for unknown indication
     Dosage: UNK
     Route: 065
  12. SULFASALAZINE [Concomitant]
     Active Substance: SULFASALAZINE
     Indication: Product used for unknown indication
     Dosage: UNK
     Route: 065
  13. METHOTREXATE [Concomitant]
     Active Substance: METHOTREXATE
     Indication: Product used for unknown indication
     Dosage: UNK
     Route: 058
  14. ARAVA [Concomitant]
     Active Substance: LEFLUNOMIDE
     Indication: Product used for unknown indication
     Dosage: UNK
     Route: 065
     Dates: start: 202004, end: 202008
  15. HYDROXYCHLOROQUINE [Concomitant]
     Active Substance: HYDROXYCHLOROQUINE
     Indication: Product used for unknown indication
     Dosage: UNK
     Route: 065
     Dates: start: 202011, end: 202101

REACTIONS (24)
  - Breast mass [Unknown]
  - Influenza [Unknown]
  - Fatigue [Unknown]
  - Myalgia [Unknown]
  - Nasal congestion [Recovering/Resolving]
  - Inflammatory pain [Unknown]
  - Neck pain [Unknown]
  - Musculoskeletal stiffness [Unknown]
  - Discomfort [Unknown]
  - Back pain [Unknown]
  - Arthralgia [Unknown]
  - Mobility decreased [Unknown]
  - Hypokinesia [Unknown]
  - Dysstasia [Unknown]
  - Balance disorder [Unknown]
  - Gait disturbance [Unknown]
  - Musculoskeletal discomfort [Unknown]
  - General physical health deterioration [Unknown]
  - COVID-19 [Unknown]
  - Pain [Recovering/Resolving]
  - Ill-defined disorder [Recovering/Resolving]
  - Product distribution issue [Unknown]
  - Product use issue [Unknown]
  - Drug ineffective [Unknown]

NARRATIVE: CASE EVENT DATE: 20180104
